FAERS Safety Report 9285093 (Version 3)
Quarter: 2013Q4

REPORT INFORMATION
  Report Type: Spontaneous
  Country: US (occurrence: US)
  Receive Date: 20130513
  Receipt Date: 20131213
  Transmission Date: 20140711
  Serious: Yes (Other)
  Sender: FDA-Public Use
  Company Number: US-ROCHE-655711

PATIENT
  Age: 23 Year
  Sex: Female
  Weight: 70.3 kg

DRUGS (5)
  1. ACCUTANE [Suspect]
     Indication: ACNE
     Dosage: FORM: PILL
     Route: 065
     Dates: start: 19971029, end: 19980405
  2. ACCUTANE [Suspect]
     Route: 065
     Dates: start: 199911, end: 200005
  3. ACCUTANE [Suspect]
     Route: 065
     Dates: start: 20000814, end: 20000914
  4. ALBUTEROL [Concomitant]
     Indication: ASTHMA
  5. DYNACIN [Concomitant]
     Indication: ACNE

REACTIONS (4)
  - Colitis ulcerative [Unknown]
  - Inflammatory bowel disease [Unknown]
  - Erythema nodosum [Unknown]
  - Large intestine polyp [Unknown]
